FAERS Safety Report 4599884-6 (Version None)
Quarter: 2005Q1

REPORT INFORMATION
  Report Type: 
  Country: None (occurrence: None)
  Receive Date: 20050307
  Receipt Date: 20050208
  Transmission Date: 20050727
  Serious: Yes (Hospitalization)
  Sender: FDA-Public Use
  Company Number: JP-MERCK-0502USA01078

PATIENT
  Age: 67 Year
  Sex: Female

DRUGS (3)
  1. PEPCID [Suspect]
     Indication: GASTRIC VARICES
     Route: 042
     Dates: start: 20050126, end: 20050126
  2. CEFAZOLIN SODIUM [Suspect]
     Indication: GASTRIC VARICES
     Route: 042
     Dates: start: 20050126, end: 20050129
  3. IOPAMIDOL [Suspect]
     Indication: GASTRIC VARICES
     Route: 065
     Dates: start: 20050126, end: 20050126

REACTIONS (3)
  - EOSINOPHIL COUNT INCREASED [None]
  - HYPERTENSION [None]
  - RASH [None]
